FAERS Safety Report 23952314 (Version 3)
Quarter: 2025Q3

REPORT INFORMATION
  Report Type: Spontaneous
  Country: US (occurrence: US)
  Receive Date: 20240607
  Receipt Date: 20250905
  Transmission Date: 20251020
  Serious: Yes (Hospitalization)
  Sender: ALEXION PHARMACEUTICALS
  Company Number: 2024A129534

PATIENT
  Age: 15 Year
  Sex: Male

DRUGS (9)
  1. SEROQUEL [Suspect]
     Active Substance: QUETIAPINE FUMARATE
     Indication: Bipolar disorder
     Dosage: 100 MILLIGRAM, QD
     Dates: start: 202401, end: 20240206
  2. SEROQUEL [Suspect]
     Active Substance: QUETIAPINE FUMARATE
     Dosage: 200 MILLIGRAM, QD
     Dates: start: 20240206, end: 20240209
  3. PLACEBO [Suspect]
     Active Substance: PLACEBO
     Indication: Lyme disease
     Dates: start: 20230315, end: 20230913
  4. LITHOBID [Concomitant]
     Active Substance: LITHIUM CARBONATE
     Dates: start: 20231009, end: 20240208
  5. VYVANSE [Concomitant]
     Active Substance: LISDEXAMFETAMINE DIMESYLATE
     Dates: start: 2015, end: 20240208
  6. LATUDA [Concomitant]
     Active Substance: LURASIDONE HYDROCHLORIDE
     Dates: start: 202203, end: 20240208
  7. TENEX [Concomitant]
     Active Substance: GUANFACINE HYDROCHLORIDE
     Dates: start: 2013, end: 20240208
  8. LAMICTAL [Concomitant]
     Active Substance: LAMOTRIGINE
     Dates: start: 20230516, end: 20240208
  9. TRILEPTAL [Concomitant]
     Active Substance: OXCARBAZEPINE

REACTIONS (4)
  - Disruptive mood dysregulation disorder [Recovered/Resolved]
  - Oppositional defiant disorder [Recovered/Resolved]
  - Anxiety [Not Recovered/Not Resolved]
  - Depression [Not Recovered/Not Resolved]

NARRATIVE: CASE EVENT DATE: 20240201
